FAERS Safety Report 11749026 (Version 1)
Quarter: 2015Q4

REPORT INFORMATION
  Report Type: Spontaneous
  Country: GB (occurrence: GB)
  Receive Date: 20151118
  Receipt Date: 20151118
  Transmission Date: 20160304
  Serious: Yes (Disabling)
  Sender: FDA-Public Use
  Company Number: GB-ASTRAZENECA-2015SF09548

PATIENT
  Age: 71 Year
  Sex: Male
  Weight: 83 kg

DRUGS (13)
  1. OMEPRAZOLE. [Concomitant]
     Active Substance: OMEPRAZOLE
     Dates: start: 20150420
  2. TICAGRELOR [Suspect]
     Active Substance: TICAGRELOR
     Route: 048
     Dates: start: 20150806
  3. ASPIRIN. [Concomitant]
     Active Substance: ASPIRIN
     Dosage: 1 DF EVERY DAY; WITH FOOD
     Dates: start: 20150911
  4. RAMIPRIL. [Concomitant]
     Active Substance: RAMIPRIL
     Dosage: NOT TO BE TAKEN IF YOU MAY BE DE...1 DF EVERY DAY
     Dates: start: 20150729
  5. SIMVASTATIN. [Concomitant]
     Active Substance: SIMVASTATIN
     Indication: BLOOD CHOLESTEROL INCREASED
     Dates: start: 20150420, end: 20150731
  6. DOXAZOSIN [Concomitant]
     Active Substance: DOXAZOSIN\DOXAZOSIN MESYLATE
     Dates: start: 20150420, end: 20150806
  7. TADALAFIL [Concomitant]
     Active Substance: TADALAFIL
     Dosage: AT LEAST 30 MIN BEFORE SEXUAL AC...1 DF / AS NECESSARY
     Dates: start: 20150420
  8. ATORVASTATIN [Concomitant]
     Active Substance: ATORVASTATIN
     Indication: BLOOD CHOLESTEROL INCREASED
     Dates: start: 20150729
  9. FINASTERIDE. [Concomitant]
     Active Substance: FINASTERIDE
     Dates: start: 20151015
  10. METFORMIN [Concomitant]
     Active Substance: METFORMIN HYDROCHLORIDE
     Dates: start: 20150420
  11. PRASUGREL [Concomitant]
     Active Substance: PRASUGREL
     Dates: start: 20151015
  12. GLYCERYL TRINITRATE [Concomitant]
     Active Substance: NITROGLYCERIN
     Indication: ANGINA PECTORIS
     Dosage: ONE-TWO SQUIRT ,REP...
     Route: 060
     Dates: start: 20150729
  13. BISOPROLOL [Concomitant]
     Active Substance: BISOPROLOL
     Dates: start: 20150729

REACTIONS (3)
  - Sleep apnoea syndrome [Unknown]
  - Diarrhoea [Unknown]
  - Dyspnoea [Recovered/Resolved]

NARRATIVE: CASE EVENT DATE: 20150901
